FAERS Safety Report 9752992 (Version 1)
Quarter: 2013Q4

REPORT INFORMATION
  Report Type: Spontaneous
  Country: US (occurrence: None)
  Receive Date: 20131211
  Receipt Date: 20131211
  Transmission Date: 20140711
  Serious: Yes (Other)
  Sender: FDA-Public Use
  Company Number: ENTC2013-0464

PATIENT
  Age: 69 Year
  Sex: Female

DRUGS (11)
  1. CARBIDOPA, LEVODOPA AND ENTACAPONE [Suspect]
     Dosage: 100/25/200, 5 IN 1 D, UNKNOWN
  2. SERONIL (FLUOXETINE) [Suspect]
  3. AMANTADINE HYDROCHLORIDE [Suspect]
  4. ORENCIA [Suspect]
  5. SINEMET [Concomitant]
  6. METHOTREXATE (METHOTREXATE) [Concomitant]
  7. ANTIEMETICS [Concomitant]
  8. VITAMIN B COMPLEX (VITAMIN B COMPLEX) [Concomitant]
  9. CENTRUM SILVER (ASCORBIC ACID) [Concomitant]
  10. CITRICAL (CALCIUM) [Concomitant]
  11. ACIFOL (FOLIC ACID) [Concomitant]

REACTIONS (8)
  - Drug effect decreased [None]
  - Tremor [None]
  - Freezing phenomenon [None]
  - Muscular weakness [None]
  - Muscular weakness [None]
  - Coordination abnormal [None]
  - Vision blurred [None]
  - Drug ineffective [None]
